FAERS Safety Report 20669500 (Version 1)
Quarter: 2022Q2

REPORT INFORMATION
  Report Type: Spontaneous
  Country: US (occurrence: US)
  Receive Date: 20220404
  Receipt Date: 20220404
  Transmission Date: 20220721
  Serious: No
  Sender: FDA-Public Use
  Company Number: US-KYOWAKIRIN-2022BKK004268

PATIENT

DRUGS (2)
  1. SANCUSO [Suspect]
     Active Substance: GRANISETRON
     Indication: Prophylaxis of nausea and vomiting
     Dosage: 1 PATCH PRIOR TO CHEMOTHERAPY AND LEAVE ON FOR 7 DAYS, EVERY 21 DAYS
     Route: 062
     Dates: start: 20220317
  2. SANCUSO [Suspect]
     Active Substance: GRANISETRON
     Dosage: 1 PATCH PRIOR TO CHEMOTHERAPY AND LEAVE ON FOR 7 DAYS, EVERY 21 DAYS
     Route: 062

REACTIONS (5)
  - Illness [Unknown]
  - Product adhesion issue [Unknown]
  - Wrong technique in product usage process [Unknown]
  - Drug ineffective [Unknown]
  - Inappropriate schedule of product administration [Unknown]

NARRATIVE: CASE EVENT DATE: 20220301
